FAERS Safety Report 8409991-5 (Version None)
Quarter: 2012Q2

REPORT INFORMATION
  Report Type: 
  Country: None (occurrence: None)
  Receive Date: 20120605
  Receipt Date: 20120529
  Transmission Date: 20120825
  Serious: Yes (Hospitalization)
  Sender: FDA-Public Use
  Company Number: US-BAYER-2011-040647

PATIENT
  Age: 30 Year
  Sex: Female
  Weight: 104.31 kg

DRUGS (11)
  1. YAZ [Suspect]
     Indication: CONTRACEPTION
     Dosage: UNK
     Dates: start: 20071101, end: 20091001
  2. EFFEXOR [Concomitant]
     Indication: DEPRESSION
     Dosage: UNK
     Route: 048
     Dates: start: 20070101, end: 20080101
  3. ALLERGY RELIEF [CETIRIZINE HYDROCHLORIDE] [Concomitant]
     Indication: MULTIPLE ALLERGIES
     Dosage: UNK
     Route: 048
     Dates: start: 20080101
  4. DROSPIRENONE AND ETHINYL ESTRADIOL [Suspect]
     Indication: CONTRACEPTION
     Dosage: UNK
     Dates: start: 20091201, end: 20101101
  5. GABAPENTIN [Concomitant]
     Dosage: 600 MG, UNK
     Route: 048
     Dates: start: 20070830
  6. OMEPRAZOLE [Concomitant]
     Indication: GASTROOESOPHAGEAL REFLUX DISEASE
     Dosage: UNK
     Dates: start: 20070101
  7. SINGULAIR [Concomitant]
     Indication: ASTHMA
     Dosage: UNK
     Route: 048
     Dates: start: 20080101
  8. PROPRANOLOL [Concomitant]
     Dosage: 120 MG, UNK
     Route: 048
     Dates: start: 20070810
  9. ORTHO TRI-CYCLEN [Concomitant]
  10. PROVENTIL [Concomitant]
     Indication: ASTHMA
     Dosage: UNK
     Dates: start: 20070928
  11. LITHIUM CARBON [Concomitant]
     Indication: BIPOLAR DISORDER
     Dosage: 300 MG, UNK
     Route: 048
     Dates: start: 20070822

REACTIONS (8)
  - CHOLECYSTITIS ACUTE [None]
  - CHOLELITHIASIS [None]
  - ABDOMINAL PAIN [None]
  - EMOTIONAL DISTRESS [None]
  - ANXIETY [None]
  - DISCOMFORT [None]
  - BILE DUCT STONE [None]
  - PAIN [None]
